FAERS Safety Report 5210547-6 (Version None)
Quarter: 2007Q1

REPORT INFORMATION
  Report Type: 
  Country: None (occurrence: None)
  Receive Date: 20070117
  Receipt Date: 20070110
  Transmission Date: 20070707
  Serious: Yes (Hospitalization)
  Sender: FDA-Public Use
  Company Number: CA-AVENTIS-200710303GDDC

PATIENT
  Age: 71 Year
  Sex: Female

DRUGS (6)
  1. ARAVA [Suspect]
     Indication: ARTHRITIS
     Dosage: DOSE: UNK
     Route: 048
     Dates: end: 20061212
  2. METHOTREXATE [Concomitant]
     Indication: ARTHRITIS
     Dosage: DOSE: UNK
  3. PREVACID [Concomitant]
     Dosage: DOSE: UNK
  4. LOSARTAN POTASSIUM [Concomitant]
     Dosage: DOSE: UNK
  5. NORVASC [Concomitant]
     Dosage: DOSE: UNK
  6. OLANZAPINE [Concomitant]
     Dosage: DOSE: UNK

REACTIONS (5)
  - MALAISE [None]
  - NAUSEA [None]
  - RESPIRATORY FAILURE [None]
  - VOMITING [None]
  - WHITE BLOOD CELL COUNT DECREASED [None]
